FAERS Safety Report 9893099 (Version 1)
Quarter: 2014Q1

REPORT INFORMATION
  Report Type: Spontaneous
  Country: GB (occurrence: GB)
  Receive Date: 20140213
  Receipt Date: 20140213
  Transmission Date: 20141002
  Serious: Yes (Hospitalization)
  Sender: FDA-Public Use
  Company Number: GB-RANBAXY-2014R1-77842

PATIENT
  Age: 44 Year
  Sex: Female
  Weight: 67.58 kg

DRUGS (4)
  1. FLUOXETINE [Suspect]
     Indication: ANXIETY DISORDER
     Dosage: 20 MG, QOD
     Route: 048
     Dates: start: 20131130, end: 20140114
  2. CETIRIZINE HYDROCHLORIDE [Concomitant]
     Indication: PRODUCT USED FOR UNKNOWN INDICATION
     Dosage: UNK
     Route: 065
  3. RANITIDINE HYDROCHLORIDE [Concomitant]
     Indication: PRODUCT USED FOR UNKNOWN INDICATION
     Dosage: UNK
     Route: 065
  4. AMITRIPTYLINE HYDROCHLORIDE [Concomitant]
     Indication: PRODUCT USED FOR UNKNOWN INDICATION
     Dosage: UNK
     Route: 065

REACTIONS (4)
  - Anxiety [Recovering/Resolving]
  - Panic attack [Recovering/Resolving]
  - Self-injurious ideation [Recovering/Resolving]
  - Suicidal ideation [Recovering/Resolving]
